FAERS Safety Report 20742370 (Version 4)
Quarter: 2022Q3

REPORT INFORMATION
  Report Type: Report from Study
  Country: US (occurrence: US)
  Receive Date: 20220424
  Receipt Date: 20220928
  Transmission Date: 20221026
  Serious: Yes (Other)
  Sender: FDA-Public Use
  Company Number: US-BRISTOL-MYERS SQUIBB COMPANY-2022-022045

PATIENT
  Age: 71 Year
  Sex: Female
  Weight: 67.5 kg

DRUGS (15)
  1. REVLIMID [Suspect]
     Active Substance: LENALIDOMIDE
     Indication: Plasma cell myeloma
     Dosage: 28/ BTL
     Route: 048
     Dates: start: 201807
  2. REVLIMID [Suspect]
     Active Substance: LENALIDOMIDE
     Indication: Iron deficiency anaemia
     Dosage: 31 MAR 2024
     Route: 048
     Dates: start: 201807
  3. REVLIMID [Suspect]
     Active Substance: LENALIDOMIDE
     Indication: Ovarian cancer
  4. REVLIMID [Suspect]
     Active Substance: LENALIDOMIDE
     Indication: Lung neoplasm malignant
  5. VELCADE [Suspect]
     Active Substance: BORTEZOMIB
     Indication: Product used for unknown indication
     Route: 065
  6. ALBUTEROL SULFATE [Concomitant]
     Active Substance: ALBUTEROL SULFATE
  7. BENADRYL ALLERGY [Concomitant]
     Active Substance: DIPHENHYDRAMINE HYDROCHLORIDE
  8. CHOLESTYRAMINE [Concomitant]
     Active Substance: CHOLESTYRAMINE
  9. FLONASE ALLERGY RELIEF [Concomitant]
     Active Substance: FLUTICASONE PROPIONATE
  10. ASPIRIN [Concomitant]
     Active Substance: ASPIRIN
     Dosage: LOW DOSE
  11. MUCINEX [Concomitant]
     Active Substance: GUAIFENESIN
  12. PYRIDOXINE [Concomitant]
     Active Substance: PYRIDOXINE
  13. VITAMIN B12 [Concomitant]
     Active Substance: CYANOCOBALAMIN
  14. VITAMIN D3 [Concomitant]
     Active Substance: CHOLECALCIFEROL
  15. ZANAFLEX [Concomitant]
     Active Substance: TIZANIDINE HYDROCHLORIDE

REACTIONS (9)
  - Fall [Unknown]
  - Chronic kidney disease [Unknown]
  - Pain [Unknown]
  - Tremor [Unknown]
  - Skin fissures [Unknown]
  - Muscle spasms [Unknown]
  - Contusion [Unknown]
  - Epistaxis [Unknown]
  - Seizure [Unknown]

NARRATIVE: CASE EVENT DATE: 20181101
